FAERS Safety Report 11391876 (Version 1)
Quarter: 2015Q3

REPORT INFORMATION
  Report Type: Spontaneous
  Country: US (occurrence: None)
  Receive Date: 20150814
  Receipt Date: 20150814
  Transmission Date: 20151125
  Serious: Yes (Other)
  Sender: FDA-Public Use
  Company Number: None

PATIENT
  Age: 48 Year
  Sex: Female
  Weight: 88.91 kg

DRUGS (10)
  1. VALERIAN ROOT [Concomitant]
     Active Substance: VALERIAN
  2. AMBIEN [Concomitant]
     Active Substance: ZOLPIDEM TARTRATE
  3. MELATONIN [Concomitant]
     Active Substance: MELATONIN
  4. FISH OIL [Concomitant]
     Active Substance: FISH OIL
  5. FLONASE [Suspect]
     Active Substance: FLUTICASONE PROPIONATE
     Indication: SINUSITIS
     Dosage: ONE SPRAY EACH NOSTRIL
     Route: 045
  6. GLUCOPHAGE [Concomitant]
     Active Substance: METFORMIN HYDROCHLORIDE
  7. VITAMIN C [Concomitant]
     Active Substance: ASCORBIC ACID
  8. FLONASE [Suspect]
     Active Substance: FLUTICASONE PROPIONATE
     Indication: EOSINOPHILIC BRONCHITIS
     Dosage: ONE SPRAY EACH NOSTRIL
     Route: 045
  9. ZINC [Concomitant]
     Active Substance: ZINC\ZINC CHLORIDE
  10. FLOVENT [Concomitant]
     Active Substance: FLUTICASONE PROPIONATE

REACTIONS (1)
  - Anosmia [None]

NARRATIVE: CASE EVENT DATE: 20150601
